FAERS Safety Report 17629709 (Version 4)
Quarter: 2020Q3

REPORT INFORMATION
  Report Type: Report from Study
  Country: UA (occurrence: UA)
  Receive Date: 20200406
  Receipt Date: 20200624
  Transmission Date: 20201104
  Serious: Yes (Hospitalization)
  Sender: FDA-Public Use
  Company Number: UA-ROCHE-2573057

PATIENT
  Age: 64 Year
  Sex: Female
  Weight: 72 kg

DRUGS (13)
  1. PACLITAXEL. [Suspect]
     Active Substance: PACLITAXEL
     Indication: BREAST CANCER
     Dosage: DOSE OF LAST PACLITAXEL ADMINISTERED PRIOR TO SAE ONSET: 10/MAR/2020 AT 15: 59 (80 MG/M2)
     Route: 042
     Dates: start: 20190813
  2. BERLITION [Concomitant]
     Route: 042
     Dates: start: 20190813
  3. DIPHENHYDRAMINE. [Concomitant]
     Active Substance: DIPHENHYDRAMINE
     Route: 042
     Dates: start: 20190813
  4. TRITACE PLUS [Concomitant]
     Indication: ESSENTIAL HYPERTENSION
     Route: 048
     Dates: start: 20190731
  5. ATEZOLIZUMAB. [Suspect]
     Active Substance: ATEZOLIZUMAB
     Indication: BREAST CANCER
     Dosage: DOSE OF LAST ATEZOLIZUMAB ADMINISTERED PRIOR TO SAE ONSET: 10/MAR/2020 AT 13: 35 (840 MG)
     Route: 041
     Dates: start: 20190813
  6. LOPERAMIDE [Suspect]
     Active Substance: LOPERAMIDE
     Indication: BREAST CANCER
     Dosage: DATE OF MOST RECENT DOSE OF LOPERAMIDE PRIOR TO SAE ONSET: 02/SEP/2019 (2 MG)
     Route: 048
     Dates: start: 20190813
  7. DEXAMETHASONUM [Concomitant]
     Active Substance: DEXAMETHASONE
     Route: 042
     Dates: start: 20190813
  8. QUAMATEL [Concomitant]
     Active Substance: FAMOTIDINE
     Route: 042
  9. IPATASERTIB. [Suspect]
     Active Substance: IPATASERTIB
     Indication: BREAST CANCER
     Dosage: DATE OF MOST RECENT DOSE OF IPATASERTIB PRIOR TO SAE ONSET: 16/MAR/2020 (400 MG)
     Route: 048
     Dates: start: 20190813
  10. MILDRONATE [MELDONIUM] [Concomitant]
     Route: 042
     Dates: start: 20190813
  11. HEPTRAL [ADEMETIONINE] [Concomitant]
     Route: 042
     Dates: start: 20190813
  12. GLUCOPHAGE XR [Concomitant]
     Active Substance: METFORMIN HYDROCHLORIDE
     Indication: DIABETES MELLITUS
     Route: 048
     Dates: start: 20190715
  13. PREDUCTAL [Concomitant]
     Active Substance: TRIMETAZIDINE DIHYDROCHLORIDE
     Indication: CARDIOTOXICITY
     Route: 048
     Dates: start: 20190731

REACTIONS (1)
  - Tumour necrosis [Recovered/Resolved]

NARRATIVE: CASE EVENT DATE: 20200128
